FAERS Safety Report 25449837 (Version 2)
Quarter: 2025Q4

REPORT INFORMATION
  Report Type: Spontaneous
  Country: US (occurrence: None)
  Receive Date: 20250618
  Receipt Date: 20251027
  Transmission Date: 20260118
  Serious: No
  Sender: UCB
  Company Number: US-UCBSA-2025028754

PATIENT
  Age: 45 Year

DRUGS (1)
  1. BIMZELX [Suspect]
     Active Substance: BIMEKIZUMAB-BKZX
     Indication: Product used for unknown indication
     Dosage: 320 MILLIGRAM, EV 4 WEEKS

REACTIONS (5)
  - Injection site pain [Recovered/Resolved]
  - Condition aggravated [Unknown]
  - Pruritus [Unknown]
  - Product distribution issue [Unknown]
  - Product dose omission issue [Unknown]
